FAERS Safety Report 13194015 (Version 4)
Quarter: 2020Q1

REPORT INFORMATION
  Report Type: Report from Study
  Country: DE (occurrence: DE)
  Receive Date: 20170207
  Receipt Date: 20200131
  Transmission Date: 20200409
  Serious: Yes (Other)
  Sender: FDA-Public Use
  Company Number: DE-INCYTE CORPORATION-2017IN000789

PATIENT

DRUGS (7)
  1. INCB018424 [Suspect]
     Active Substance: RUXOLITINIB
     Dosage: 15 MG, BID (2 DF PER DAY)
     Route: 048
     Dates: start: 20151027
  2. INCB018424 [Suspect]
     Active Substance: RUXOLITINIB
     Dosage: 30 MG/DAY/TWICE
     Route: 048
     Dates: start: 20160303, end: 20160420
  3. INCB018424 [Suspect]
     Active Substance: RUXOLITINIB
     Dosage: 20 MG/DAY/TWICE
     Route: 048
     Dates: start: 20160121, end: 20160302
  4. METFORMIN [Concomitant]
     Active Substance: METFORMIN HYDROCHLORIDE
     Indication: TYPE 2 DIABETES MELLITUS
     Dosage: 1000 MG, BID
     Route: 065
     Dates: start: 2011
  5. INCB018424 [Suspect]
     Active Substance: RUXOLITINIB
     Indication: PRIMARY MYELOFIBROSIS
     Dosage: 30 MG/DAY/TWICE
     Route: 048
     Dates: start: 20150817
  6. INCB018424 [Suspect]
     Active Substance: RUXOLITINIB
     Dosage: 40 MG/DAY/TWICE
     Route: 048
     Dates: start: 20151123, end: 20160120
  7. INCB018424 [Suspect]
     Active Substance: RUXOLITINIB
     Dosage: 30 MG/DAY/TWICE
     Route: 048
     Dates: start: 20160512, end: 20160822

REACTIONS (5)
  - Gamma-glutamyltransferase increased [Not Recovered/Not Resolved]
  - Hyperuricaemia [Not Recovered/Not Resolved]
  - Anaemia [Not Recovered/Not Resolved]
  - Cachexia [Recovered/Resolved]
  - Platelet count decreased [Not Recovered/Not Resolved]

NARRATIVE: CASE EVENT DATE: 20150817
